FAERS Safety Report 13230176 (Version 1)
Quarter: 2017Q1

REPORT INFORMATION
  Report Type: Spontaneous
  Country: ES (occurrence: ES)
  Receive Date: 20170214
  Receipt Date: 20170214
  Transmission Date: 20170428
  Serious: Yes (Other)
  Sender: FDA-Public Use
  Company Number: ES-ABBVIE-17P-144-1872001-00

PATIENT
  Age: 58 Year
  Sex: Female

DRUGS (1)
  1. DUODOPA [Suspect]
     Active Substance: CARBIDOPA\LEVODOPA
     Indication: PARKINSON^S DISEASE
     Dosage: MORNING DOSE 20; CONTINUOUS DOSE: 6; EXTRA DOSE: 6
     Route: 050
     Dates: start: 20170202

REACTIONS (1)
  - Catatonia [Unknown]

NARRATIVE: CASE EVENT DATE: 201702
